FAERS Safety Report 18283871 (Version 3)
Quarter: 2020Q4

REPORT INFORMATION
  Report Type: Spontaneous
  Country: CA (occurrence: CA)
  Receive Date: 20200918
  Receipt Date: 20201027
  Transmission Date: 20210113
  Serious: Yes (Hospitalization)
  Sender: FDA-Public Use
  Company Number: CA-PFIZER INC-2020154880

PATIENT
  Age: 66 Year
  Sex: Male
  Weight: 95 kg

DRUGS (7)
  1. ZIRABEV [Suspect]
     Active Substance: BEVACIZUMAB-BVZR
     Dosage: 1300 MG, EVERY 3 WEEKS
     Route: 042
     Dates: start: 20200604
  2. ZIRABEV [Suspect]
     Active Substance: BEVACIZUMAB-BVZR
     Dosage: 1300 MG, EVERY 3 WEEKS
     Route: 042
     Dates: start: 20201008, end: 20201008
  3. ZIRABEV [Suspect]
     Active Substance: BEVACIZUMAB-BVZR
     Dosage: 1300 MG, EVERY 3 WEEKS
     Route: 042
     Dates: start: 20200625
  4. ZIRABEV [Suspect]
     Active Substance: BEVACIZUMAB-BVZR
     Indication: GLIOBLASTOMA
     Dosage: 1300 MG, EVERY 3 WEEKS
     Route: 042
     Dates: start: 20200423
  5. ZIRABEV [Suspect]
     Active Substance: BEVACIZUMAB-BVZR
     Dosage: 1300 MG, EVERY 3 WEEKS
     Route: 042
     Dates: start: 20200827, end: 202009
  6. ZIRABEV [Suspect]
     Active Substance: BEVACIZUMAB-BVZR
     Dosage: 1300 MG, EVERY 3 WEEKS
     Route: 042
     Dates: start: 20200827, end: 202009
  7. ZIRABEV [Suspect]
     Active Substance: BEVACIZUMAB-BVZR
     Dosage: 1300 MG, EVERY 3 WEEKS
     Route: 042
     Dates: start: 20200604

REACTIONS (15)
  - Haemoglobin decreased [Not Recovered/Not Resolved]
  - Haematocrit decreased [Not Recovered/Not Resolved]
  - Mean cell haemoglobin increased [Recovered/Resolved]
  - Immature granulocyte count increased [Not Recovered/Not Resolved]
  - Lymphocyte count decreased [Not Recovered/Not Resolved]
  - Weight decreased [Unknown]
  - Product use issue [Unknown]
  - Fall [Unknown]
  - Red blood cell count decreased [Not Recovered/Not Resolved]
  - Red cell distribution width increased [Not Recovered/Not Resolved]
  - Off label use [Unknown]
  - Blood ketone body present [Unknown]
  - Condition aggravated [Unknown]
  - Blood 25-hydroxycholecalciferol decreased [Unknown]
  - Blood magnesium decreased [Unknown]

NARRATIVE: CASE EVENT DATE: 20200423
